FAERS Safety Report 9031838 (Version 13)
Quarter: 2013Q2

REPORT INFORMATION
  Report Type: Spontaneous
  Country: CO (occurrence: CO)
  Receive Date: 20130124
  Receipt Date: 20130621
  Transmission Date: 20140414
  Serious: Yes (Hospitalization, Other)
  Sender: FDA-Public Use
  Company Number: CO-VERTEX PHARMACEUTICALS INC.-2013-001140

PATIENT
  Age: 48 Year
  Sex: Male
  Weight: 85 kg

DRUGS (7)
  1. INCIVO [Suspect]
     Indication: HEPATITIS C
     Dosage: 750 MG, EVERY 8 HOURS
     Route: 048
     Dates: start: 20121018, end: 20130109
  2. PEGINTERFERON ALFA [Concomitant]
     Indication: HEPATITIS C
     Dosage: DOSAGE FORM: AMP SC.
     Route: 058
     Dates: start: 20121018
  3. RIBAVIRIN [Concomitant]
     Indication: HEPATITIS C
     Dosage: DOSAGE FORM: UNSPECIFIED
     Route: 065
     Dates: start: 20121018
  4. OMEPRAZOLE [Concomitant]
     Indication: GASTRITIS
     Dosage: DOSAGE FORM: CAPSULE
     Dates: start: 20121018
  5. ENALAPRIL [Concomitant]
     Indication: HYPERTENSION
     Dosage: DOSAGE FORM: TABLET
     Route: 048
  6. ATIVAN [Concomitant]
     Indication: PANIC DISORDER
     Dosage: UNK UNK, BID
     Route: 065
  7. SERTRALINE [Concomitant]
     Indication: HYPERTENSION
     Dosage: DOSAGE FORM: TABLET
     Route: 048

REACTIONS (17)
  - Pneumonia [None]
  - Influenza [Unknown]
  - Tuberculosis [Unknown]
  - Sinusitis [Not Recovered/Not Resolved]
  - Depression [Not Recovered/Not Resolved]
  - Asthma [Unknown]
  - Bronchitis [Unknown]
  - Myalgia [Unknown]
  - Alopecia [Unknown]
  - Sexual dysfunction [Unknown]
  - Muscle spasms [Unknown]
  - Abdominal pain [Recovered/Resolved]
  - Malaise [Unknown]
  - Viral test positive [Unknown]
  - Diarrhoea [Unknown]
  - Vomiting [Unknown]
  - Drug ineffective [Unknown]
